FAERS Safety Report 19905939 (Version 1)
Quarter: 2021Q4

REPORT INFORMATION
  Report Type: Spontaneous
  Country: US (occurrence: US)
  Receive Date: 20211001
  Receipt Date: 20211001
  Transmission Date: 20220303
  Serious: Yes (unspecified)
  Sender: FDA-Public Use
  Company Number: None

PATIENT
  Age: 40 Year
  Sex: Female

DRUGS (1)
  1. MAGNESIUM CHLORIDE [Suspect]
     Active Substance: MAGNESIUM CHLORIDE
     Indication: Hypomagnesaemia
     Route: 042
     Dates: start: 20210922, end: 20210930

REACTIONS (2)
  - Flushing [None]
  - Hot flush [None]

NARRATIVE: CASE EVENT DATE: 20210922
